FAERS Safety Report 10213237 (Version 1)
Quarter: 2014Q2

REPORT INFORMATION
  Report Type: Spontaneous
  Country: US (occurrence: None)
  Receive Date: 20140530
  Receipt Date: 20140530
  Transmission Date: 20141212
  Serious: Yes (Hospitalization)
  Sender: FDA-Public Use
  Company Number: None

PATIENT
  Age: 78 Year
  Sex: Male
  Weight: 65.1 kg

DRUGS (1)
  1. PREDNISONE [Suspect]
     Dosage: MG EVERY DAY PO
     Route: 048
     Dates: start: 20140222

REACTIONS (1)
  - Delirium [None]
